FAERS Safety Report 13311595 (Version 4)
Quarter: 2017Q3

REPORT INFORMATION
  Report Type: Spontaneous
  Country: US (occurrence: US)
  Receive Date: 20170309
  Receipt Date: 20170920
  Transmission Date: 20171127
  Serious: No
  Sender: FDA-Public Use
  Company Number: US-JNJFOC-20150713840

PATIENT
  Age: 40 Year
  Sex: Male
  Weight: 106.14 kg

DRUGS (7)
  1. RISPERDAL [Suspect]
     Active Substance: RISPERIDONE
     Indication: PRODUCT USED FOR UNKNOWN INDICATION
     Route: 048
  2. INVEGA SUSTENNA [Suspect]
     Active Substance: PALIPERIDONE PALMITATE
     Indication: PSYCHOTIC DISORDER
     Dosage: 156 MG TO 234 MG
     Route: 030
     Dates: start: 201110, end: 201205
  3. INVEGA SUSTENNA [Suspect]
     Active Substance: PALIPERIDONE PALMITATE
     Indication: DRUG THERAPY
     Route: 030
     Dates: end: 201206
  4. INVEGA SUSTENNA [Suspect]
     Active Substance: PALIPERIDONE PALMITATE
     Indication: DRUG THERAPY
     Dosage: 156 MG TO 234 MG
     Route: 030
     Dates: start: 201110, end: 201205
  5. ZYPREXA [Suspect]
     Active Substance: OLANZAPINE
     Indication: PRODUCT USED FOR UNKNOWN INDICATION
     Route: 065
  6. INVEGA [Suspect]
     Active Substance: PALIPERIDONE
     Indication: PSYCHOTIC DISORDER
     Route: 048
     Dates: start: 201205, end: 201206
  7. INVEGA SUSTENNA [Suspect]
     Active Substance: PALIPERIDONE PALMITATE
     Indication: PSYCHOTIC DISORDER
     Route: 030
     Dates: end: 201206

REACTIONS (13)
  - Chest pain [Unknown]
  - Insomnia [Unknown]
  - Adverse drug reaction [Unknown]
  - Gynaecomastia [Unknown]
  - Injection site pain [Unknown]
  - Treatment noncompliance [Unknown]
  - Overweight [Unknown]
  - Myalgia [Unknown]
  - Dyspnoea [Unknown]
  - Malaise [Unknown]
  - Hyperprolactinaemia [Unknown]
  - Palpitations [Unknown]
  - Injection site pain [Unknown]

NARRATIVE: CASE EVENT DATE: 20110823
